FAERS Safety Report 11350866 (Version 1)
Quarter: 2015Q3

REPORT INFORMATION
  Report Type: Spontaneous
  Country: US (occurrence: None)
  Receive Date: 20150806
  Receipt Date: 20150806
  Transmission Date: 20151125
  Serious: Yes (Hospitalization)
  Sender: FDA-Public Use
  Company Number: None

PATIENT
  Age: 56 Year
  Sex: Male

DRUGS (5)
  1. DYAZIDE [Concomitant]
     Active Substance: HYDROCHLOROTHIAZIDE\TRIAMTERENE
  2. NORVASC [Concomitant]
     Active Substance: AMLODIPINE BESYLATE
  3. ANCEF [Suspect]
     Active Substance: CEFAZOLIN SODIUM
     Indication: CHOLECYSTITIS ACUTE
     Dates: start: 20140717, end: 201407
  4. ERTAPENEM [Suspect]
     Active Substance: ERTAPENEM
     Indication: CHOLECYSTITIS ACUTE
     Dates: start: 20140717, end: 201407
  5. UNASYN [Suspect]
     Active Substance: AMPICILLIN SODIUM\SULBACTAM SODIUM
     Indication: CHOLECYSTITIS ACUTE
     Dates: start: 20140717, end: 201407

REACTIONS (1)
  - Drug-induced liver injury [None]

NARRATIVE: CASE EVENT DATE: 20140805
